FAERS Safety Report 8251799-8 (Version None)
Quarter: 2012Q1

REPORT INFORMATION
  Report Type: 
  Country: None (occurrence: None)
  Receive Date: 20120321
  Receipt Date: 20100304
  Transmission Date: 20120608
  Serious: Yes (Other)
  Sender: FDA-Public Use
  Company Number: PHHY2010US10305

PATIENT
  Sex: Female

DRUGS (4)
  1. INDERAL (PROPRANOLOL HYDROCHLORIDE) ONGOING [Concomitant]
  2. VALTURNA [Suspect]
     Indication: HYPERTENSION
     Dosage: 150/ 160 MG DAILY, ORAL 300/ 320 MG DAILY, ORAL
     Route: 048
     Dates: start: 20100101, end: 20100221
  3. VALTURNA [Suspect]
     Indication: HYPERTENSION
     Dosage: 150/ 160 MG DAILY, ORAL 300/ 320 MG DAILY, ORAL
     Route: 048
     Dates: start: 20100222
  4. LANOXIN [Concomitant]

REACTIONS (1)
  - BLOOD PRESSURE INADEQUATELY CONTROLLED [None]
